FAERS Safety Report 8561153-7 (Version None)
Quarter: 2012Q3

REPORT INFORMATION
  Report Type: 
  Country: None (occurrence: None)
  Receive Date: 20120802
  Receipt Date: 20120724
  Transmission Date: 20120928
  Serious: Yes (Hospitalization, Other)
  Sender: FDA-Public Use
  Company Number: US-ASTRAZENECA-2011SE34986

PATIENT
  Age: 51 Year
  Sex: Male

DRUGS (3)
  1. SYMBICORT [Suspect]
     Indication: CHRONIC OBSTRUCTIVE PULMONARY DISEASE
     Dosage: 160 MCG BID
     Route: 055
     Dates: start: 20080101
  2. CHOL MED [Concomitant]
     Indication: HYPERCHOLESTEROLAEMIA
  3. BP MEDICATION [Concomitant]
     Indication: HYPERTENSION

REACTIONS (3)
  - HIP FRACTURE [None]
  - INTENTIONAL DRUG MISUSE [None]
  - FALL [None]
